FAERS Safety Report 11368819 (Version 2)
Quarter: 2015Q3

REPORT INFORMATION
  Report Type: Spontaneous
  Country: US (occurrence: US)
  Receive Date: 20150812
  Receipt Date: 20150928
  Transmission Date: 20151125
  Serious: No
  Sender: FDA-Public Use
  Company Number: US-TEVA-585340USA

PATIENT
  Sex: Female

DRUGS (1)
  1. COPAXONE [Suspect]
     Active Substance: GLATIRAMER ACETATE
     Indication: MULTIPLE SCLEROSIS
     Route: 058
     Dates: start: 20150714, end: 20150801

REACTIONS (4)
  - Headache [Recovering/Resolving]
  - Breast mass [Unknown]
  - Anxiety [Recovering/Resolving]
  - Irritability [Recovering/Resolving]
